FAERS Safety Report 5795363-9 (Version None)
Quarter: 2008Q2

REPORT INFORMATION
  Report Type: 
  Country: None (occurrence: None)
  Receive Date: 20080601
  Receipt Date: 20080124
  Transmission Date: 20081010
  Serious: No
  Sender: FDA-Public Use
  Company Number: US200801005386

PATIENT
  Age: 75 Year
  Sex: Male

DRUGS (4)
  1. BYETTA [Suspect]
     Dosage: 5 UG, SUBCUTANEOUS : 10 UG, SUBCUTANEOUS
     Route: 058
     Dates: start: 20060406, end: 20060501
  2. BYETTA [Suspect]
     Dosage: 5 UG, SUBCUTANEOUS : 10 UG, SUBCUTANEOUS
     Route: 058
     Dates: start: 20060501
  3. METFORMIN HCL [Concomitant]
  4. GLIPIZIDE [Concomitant]

REACTIONS (2)
  - BLOOD GLUCOSE INCREASED [None]
  - DRUG INEFFECTIVE [None]
